FAERS Safety Report 5524258-0 (Version None)
Quarter: 2007Q4

REPORT INFORMATION
  Report Type: 
  Country: None (occurrence: None)
  Receive Date: 20071121
  Receipt Date: 20071112
  Transmission Date: 20080405
  Serious: Yes (Other)
  Sender: FDA-Public Use
  Company Number: US-PFIZER INC-2007095095

PATIENT
  Sex: Male
  Weight: 68 kg

DRUGS (4)
  1. VIAGRA [Suspect]
     Indication: ERECTILE DYSFUNCTION
  2. CARDURA [Concomitant]
  3. SOTALOL HYDROCHLORIDE [Concomitant]
  4. NEXIUM [Concomitant]

REACTIONS (1)
  - HERNIA [None]
